FAERS Safety Report 10175468 (Version 2)
Quarter: 2014Q2

REPORT INFORMATION
  Report Type: Spontaneous
  Country: JP (occurrence: JP)
  Receive Date: 20140515
  Receipt Date: 20140617
  Transmission Date: 20141212
  Serious: Yes (Death)
  Sender: FDA-Public Use
  Company Number: JP-BRISTOL-MYERS SQUIBB COMPANY-20750675

PATIENT
  Age: 7 Decade
  Sex: Male

DRUGS (1)
  1. ELIQUIS [Suspect]
     Dosage: 2.5MG TABS
     Route: 048

REACTIONS (1)
  - Death [Fatal]
